FAERS Safety Report 5031297-5 (Version None)
Quarter: 2006Q2

REPORT INFORMATION
  Report Type: 
  Country: None (occurrence: None)
  Receive Date: 20060616
  Receipt Date: 20060530
  Transmission Date: 20061013
  Serious: Yes (Death, Hospitalization)
  Sender: FDA-Public Use
  Company Number: FR-SHR-04-023630

PATIENT
  Age: 72 Year
  Sex: Male

DRUGS (2)
  1. BETASERON [Suspect]
     Indication: MULTIPLE SCLEROSIS
     Dosage: 1 AMP, EVERY 2D, SUBCUTANEOUS
     Route: 058
     Dates: start: 20010901, end: 20040322
  2. SKELID [Concomitant]

REACTIONS (7)
  - ACCIDENT [None]
  - CARDIO-RESPIRATORY ARREST [None]
  - CEREBRAL HAEMORRHAGE [None]
  - CONFUSIONAL STATE [None]
  - DYSPNOEA [None]
  - FALL [None]
  - PULMONARY EMBOLISM [None]
